FAERS Safety Report 15413590 (Version 3)
Quarter: 2018Q4

REPORT INFORMATION
  Report Type: Report from Study
  Country: US (occurrence: US)
  Receive Date: 20180921
  Receipt Date: 20181008
  Transmission Date: 20190204
  Serious: Yes (Hospitalization)
  Sender: FDA-Public Use
  Company Number: US-SHIRE-US201835933

PATIENT
  Sex: Female
  Weight: 60.77 kg

DRUGS (1)
  1. GATTEX [Suspect]
     Active Substance: TEDUGLUTIDE\WATER
     Indication: SHORT-BOWEL SYNDROME
     Dosage: 0.15 ML, 1X/DAY:QD
     Route: 050

REACTIONS (3)
  - Amnesia [Unknown]
  - Hallucination [Unknown]
  - Confusional state [Unknown]
